FAERS Safety Report 14281537 (Version 6)
Quarter: 2018Q1

REPORT INFORMATION
  Report Type: Spontaneous
  Country: RO (occurrence: RO)
  Receive Date: 20171213
  Receipt Date: 20180329
  Transmission Date: 20180508
  Serious: Yes (Other)
  Sender: FDA-Public Use
  Company Number: RO-MYLANLABS-2017M1078348

PATIENT
  Age: 60 Year
  Sex: Female

DRUGS (13)
  1. LEVOCETIRIZINE DIHYDROCHLORIDE. [Suspect]
     Active Substance: LEVOCETIRIZINE DIHYDROCHLORIDE
     Indication: HYPERTENSION
     Dosage: 5 MG DAILY PRN 5 MG, AS NEEDED(PRN), DOSAGE FORM: UNSPECIFIED, AS REQUIRED
     Route: 065
  2. INDAPAMIDE/PERINDOPRIL [Suspect]
     Active Substance: INDAPAMIDE\PERINDOPRIL
     Indication: HYPERTENSION
     Dosage: UNK
  3. HYDROCHLOROTHIAZIDE/TELMISARTAN [Suspect]
     Active Substance: HYDROCHLOROTHIAZIDE\TELMISARTAN
     Indication: HYPERTENSION
     Dosage: 1 DF, UNK, 12.5 MG/ 80MG
  4. AMLODIPINE [Suspect]
     Active Substance: AMLODIPINE BESYLATE
     Indication: HYPERTENSION
     Dosage: 10 MG, DOSAGE FORM: UNSPECIFIED,
     Route: 065
  5. METOPROLOL. [Suspect]
     Active Substance: METOPROLOL
     Indication: HYPERTENSION
     Dosage: 50 MG, LONG RELEASE
     Route: 065
  6. PERINDOPRIL [Suspect]
     Active Substance: PERINDOPRIL
     Indication: HYPERTENSION
     Dosage: DOSAGE FORM: UNSPECIFIED
     Route: 065
  7. LEVOCETIRIZINE DIHYDROCHLORIDE. [Suspect]
     Active Substance: LEVOCETIRIZINE DIHYDROCHLORIDE
     Indication: ALLERGIC REACTION TO EXCIPIENT
  8. ALLOPURINOL. [Suspect]
     Active Substance: ALLOPURINOL
     Indication: HYPERURICAEMIA
     Dosage: 100 MG, UNK, DOSAGE FORM: UNSPECIFIED,
     Route: 065
  9. LACTOSE [Suspect]
     Active Substance: LACTOSE
     Indication: PRODUCT USED FOR UNKNOWN INDICATION
     Dosage: DOSAGE FORM: UNSPECIFIED
     Route: 065
  10. METFORMIN [Suspect]
     Active Substance: METFORMIN HYDROCHLORIDE
     Indication: DIABETES MELLITUS
     Dosage: 1000 MG, DOSAGE FORM: UNSPECIFIED
     Route: 065
  11. CETIRIZINE [Suspect]
     Active Substance: CETIRIZINE HYDROCHLORIDE
     Indication: ALLERGIC REACTION TO EXCIPIENT
     Dosage: DOSAGE FORM: SOLUTION
     Route: 048
  12. RILMENIDINE [Suspect]
     Active Substance: RILMENIDINE
     Indication: HYPERTENSION
     Dosage: 1.5 MG, QD, DOSAGE FORM: UNSPECIFIED
     Route: 048
  13. MICARDIS PLUS [Suspect]
     Active Substance: HYDROCHLOROTHIAZIDE\TELMISARTAN
     Indication: HYPERTENSION
     Dosage: 1 DF, UNK
     Route: 065

REACTIONS (7)
  - Off label use [Unknown]
  - Eye oedema [Recovered/Resolved]
  - Urticaria [Recovered/Resolved]
  - Swelling face [Unknown]
  - Angioedema [Recovered/Resolved]
  - Allergic reaction to excipient [Recovered/Resolved]
  - Condition aggravated [Recovered/Resolved]

NARRATIVE: CASE EVENT DATE: 201702
